FAERS Safety Report 15164983 (Version 1)
Quarter: 2018Q3

REPORT INFORMATION
  Report Type: Spontaneous
  Country: US (occurrence: US)
  Receive Date: 20180621
  Receipt Date: 20180621
  Transmission Date: 20181010
  Serious: No
  Sender: FDA-Public Use
  Company Number: None

PATIENT
  Age: 46 Year
  Sex: Female

DRUGS (17)
  1. TIZANIDINE. [Concomitant]
     Active Substance: TIZANIDINE
  2. ZINC CHELATE [Concomitant]
  3. IBUPROFEN. [Concomitant]
     Active Substance: IBUPROFEN
  4. VITAMIN E [Concomitant]
     Active Substance: .ALPHA.-TOCOPHEROL
  5. MIRALAX [Concomitant]
     Active Substance: POLYETHYLENE GLYCOL 3350
  6. MULTI?VITAMIN [Concomitant]
     Active Substance: .ALPHA.-TOCOPHEROL ACETATE, DL-\ASCORBIC ACID\CYANOCOBALAMIN\FLUORIDE ION\FOLIC ACID\NIACIN\PYRIDOXINE\RIBOFLAVIN\THIAMINE\VITAMIN A\VITAMIN D
  7. CITRACAL [Concomitant]
     Active Substance: CALCIUM CITRATE
  8. PRILOSEC [Concomitant]
     Active Substance: OMEPRAZOLE MAGNESIUM
  9. MORPHINE [Concomitant]
     Active Substance: MORPHINE
  10. LORAZEPAM. [Concomitant]
     Active Substance: LORAZEPAM
  11. ONDANSETRON [Concomitant]
     Active Substance: ONDANSETRON
  12. LAXITIVE SUP [Concomitant]
  13. IBRANCE [Suspect]
     Active Substance: PALBOCICLIB
     Indication: BREAST CANCER
     Route: 048
     Dates: start: 20180214
  14. HYDROCO/APAP [Concomitant]
     Active Substance: ACETAMINOPHEN\HYDROCODONE
  15. GRALISE [Concomitant]
     Active Substance: GABAPENTIN
  16. AMITRIPTYLIN [Concomitant]
     Active Substance: AMITRIPTYLINE
  17. PROCHLORPER [Concomitant]

REACTIONS (1)
  - Platelet count decreased [None]

NARRATIVE: CASE EVENT DATE: 20180620
